FAERS Safety Report 7792681-X (Version None)
Quarter: 2011Q4

REPORT INFORMATION
  Report Type: 
  Country: None (occurrence: None)
  Receive Date: 20111003
  Receipt Date: 20110921
  Transmission Date: 20120403
  Serious: Yes (Other)
  Sender: FDA-Public Use
  Company Number: US-MYLANLABS-2011S1019737

PATIENT
  Age: 81 Year
  Sex: Female

DRUGS (4)
  1. MIRTAZAPINE [Suspect]
     Indication: INSOMNIA
     Route: 048
     Dates: start: 20110622, end: 20110702
  2. ASPIRIN [Concomitant]
     Dosage: BABY ASPIRIN
     Route: 048
  3. MIRTAZAPINE [Suspect]
     Route: 048
     Dates: start: 20110703, end: 20110709
  4. MIRTAZAPINE [Suspect]
     Route: 048
     Dates: start: 20110711, end: 20110712

REACTIONS (4)
  - TRANSIENT ISCHAEMIC ATTACK [None]
  - BALANCE DISORDER [None]
  - ASTHENIA [None]
  - FEELING DRUNK [None]
